FAERS Safety Report 7172454-1 (Version None)
Quarter: 2010Q4

REPORT INFORMATION
  Report Type: 
  Country: None (occurrence: None)
  Receive Date: 20101217
  Receipt Date: 20100529
  Transmission Date: 20110411
  Serious: Yes (Other)
  Sender: FDA-Public Use
  Company Number: US-AMGEN-US390042

PATIENT

DRUGS (2)
  1. ENBREL [Suspect]
     Indication: PSORIATIC ARTHROPATHY
     Dosage: 50 MG, QWK
     Route: 058
     Dates: end: 20070101
  2. ENBREL [Suspect]
     Indication: PSORIASIS

REACTIONS (6)
  - ARTHRALGIA [None]
  - DEPRESSION [None]
  - FATIGUE [None]
  - LETHARGY [None]
  - PSORIASIS [None]
  - PSORIATIC ARTHROPATHY [None]
